FAERS Safety Report 8811832 (Version 1)
Quarter: 2012Q4

REPORT INFORMATION
  Report Type: Spontaneous
  Country: US (occurrence: None)
  Receive Date: 20120926
  Receipt Date: 20120926
  Transmission Date: 20130627
  Serious: No
  Sender: FDA-Public Use
  Company Number: None

PATIENT
  Age: 31 Year
  Sex: Female
  Weight: 59.42 kg

DRUGS (1)
  1. ESCITALOPRAM [Suspect]
     Indication: DEPRESSION
     Dosage: 10mg 1 po QD
     Route: 048
     Dates: start: 20120917, end: 20120924

REACTIONS (6)
  - Headache [None]
  - Fatigue [None]
  - Nausea [None]
  - Irritability [None]
  - Decreased appetite [None]
  - Product substitution issue [None]
